FAERS Safety Report 17850180 (Version 8)
Quarter: 2021Q4

REPORT INFORMATION
  Report Type: Spontaneous
  Country: US (occurrence: US)
  Receive Date: 20200602
  Receipt Date: 20211203
  Transmission Date: 20220303
  Serious: Yes (Other)
  Sender: FDA-Public Use
  Company Number: US-PFIZER INC-2020175945

PATIENT
  Age: 94 Year
  Sex: Female

DRUGS (3)
  1. LYRICA [Suspect]
     Active Substance: PREGABALIN
     Indication: Mononeuropathy
     Dosage: 25 MG, 2X/DAY
     Route: 048
  2. LYRICA [Suspect]
     Active Substance: PREGABALIN
     Dosage: 50 MG, 2X/DAY
     Route: 048
  3. LYRICA [Suspect]
     Active Substance: PREGABALIN
     Dosage: 150 MG, DAILY(25 MG CAP TWICE A DAY; 50 MG CAP TWICE A DAY)
     Route: 048

REACTIONS (3)
  - Parkinson^s disease [Unknown]
  - Movement disorder [Unknown]
  - Speech disorder [Unknown]
